FAERS Safety Report 24268212 (Version 2)
Quarter: 2024Q3

REPORT INFORMATION
  Report Type: Spontaneous
  Country: US (occurrence: US)
  Receive Date: 20240830
  Receipt Date: 20240923
  Transmission Date: 20241017
  Serious: Yes (Other)
  Sender: PARATEK PHARMACEUTICALS
  Company Number: US-PARATEK PHARMACEUTICALS, INC.-2024PTK00754

PATIENT
  Age: 35 Year
  Sex: Female
  Weight: 108.84 kg

DRUGS (5)
  1. NUZYRA [Suspect]
     Active Substance: OMADACYCLINE
     Indication: Cellulitis
     Dosage: 150 MG, 3X/DAY
     Route: 048
     Dates: start: 20240812, end: 20240813
  2. NUZYRA [Suspect]
     Active Substance: OMADACYCLINE
     Indication: Hidradenitis
     Dosage: 150 MG, 2X/DAY
     Route: 048
     Dates: start: 20240814, end: 20240822
  3. NUZYRA [Suspect]
     Active Substance: OMADACYCLINE
     Indication: Corynebacterium infection
  4. NUZYRA [Suspect]
     Active Substance: OMADACYCLINE
     Indication: Peptostreptococcus infection
  5. NUZYRA [Suspect]
     Active Substance: OMADACYCLINE
     Indication: Bacterial infection

REACTIONS (4)
  - Asthma [Recovered/Resolved]
  - Nausea [Recovered/Resolved]
  - Vomiting [Recovered/Resolved]
  - Off label use [Recovered/Resolved]

NARRATIVE: CASE EVENT DATE: 20240801
